FAERS Safety Report 8609492 (Version 4)
Quarter: 2013Q1

REPORT INFORMATION
  Report Type: Report from Study
  Country: CH (occurrence: CH)
  Receive Date: 20120612
  Receipt Date: 20130207
  Transmission Date: 20140127
  Serious: Yes (Hospitalization)
  Sender: FDA-Public Use
  Company Number: CH-BRISTOL-MYERS SQUIBB COMPANY-16665937

PATIENT
  Age: 59 Year
  Sex: Male

DRUGS (7)
  1. CETUXIMAB [Suspect]
     Indication: OESOPHAGEAL CARCINOMA
     Dosage: LAST ADMINS ON 18MAY12?THERAPY DT:11APR12,18MAY12,25MAY12
     Route: 042
     Dates: start: 20120321
  2. CISPLATIN FOR INJ [Suspect]
     Indication: OESOPHAGEAL CARCINOMA
     Dosage: LAST ADMINS ON 18MAY12?THERAPY DT:11APR12,18MAY12,25MAY12
     Route: 042
     Dates: start: 20120321
  3. TAXOTERE [Suspect]
     Indication: OESOPHAGEAL CARCINOMA
     Dosage: LAST ADMINS ON 18MAY12?THERAPY DT:11APR12,18MAY12,25MAY12
     Route: 042
     Dates: start: 20120321
  4. ULCOGANT [Concomitant]
     Dosage: TOTAL:8GM
  5. VIBRAMYCIN [Concomitant]
     Dosage: TABS
  6. PANTOZOL [Concomitant]
     Dosage: TABS
  7. PASPERTIN [Concomitant]
     Dosage: TABS

REACTIONS (3)
  - Fatigue [Recovered/Resolved]
  - Nausea [Recovered/Resolved]
  - Dizziness [Recovered/Resolved]
